FAERS Safety Report 16313153 (Version 1)
Quarter: 2019Q2

REPORT INFORMATION
  Report Type: Spontaneous
  Country: US (occurrence: US)
  Receive Date: 20190515
  Receipt Date: 20190515
  Transmission Date: 20190711
  Serious: No
  Sender: FDA-Public Use
  Company Number: US-ASTRAZENECA-2019SE70073

PATIENT
  Age: 695 Month
  Sex: Female
  Weight: 56.7 kg

DRUGS (8)
  1. NEXIUM 24HR [Suspect]
     Active Substance: ESOMEPRAZOLE MAGNESIUM
     Indication: ILL-DEFINED DISORDER
     Route: 048
     Dates: start: 201902, end: 20190502
  2. METOPROLOL SUCCINATE. [Suspect]
     Active Substance: METOPROLOL SUCCINATE
     Dosage: 50.0MG UNKNOWN
     Route: 048
  3. TOPAMAX [Concomitant]
     Active Substance: TOPIRAMATE
     Indication: CLUSTER HEADACHE
  4. ESOMEPRAZOLE MAGNESIUM. [Suspect]
     Active Substance: ESOMEPRAZOLE MAGNESIUM
     Indication: ILL-DEFINED DISORDER
     Route: 048
     Dates: start: 20190501, end: 20190502
  5. ESOMEPRAZOLE MAGNESIUM. [Suspect]
     Active Substance: ESOMEPRAZOLE MAGNESIUM
     Indication: ABDOMINAL PAIN UPPER
     Route: 048
     Dates: start: 20190501, end: 20190502
  6. METOPROLOL SUCCINATE. [Suspect]
     Active Substance: METOPROLOL SUCCINATE
     Dosage: ONCE DAILY UNKNOWN
     Route: 048
  7. SYNTHROID [Concomitant]
     Active Substance: LEVOTHYROXINE SODIUM
  8. NEXIUM 24HR [Suspect]
     Active Substance: ESOMEPRAZOLE MAGNESIUM
     Indication: ABDOMINAL PAIN UPPER
     Route: 048
     Dates: start: 201902, end: 20190502

REACTIONS (9)
  - Burn oesophageal [Recovered/Resolved]
  - Gastrointestinal ulcer [Unknown]
  - Oesophageal disorder [Unknown]
  - Blood pressure decreased [Unknown]
  - Weight decreased [Unknown]
  - Feeding disorder [Unknown]
  - Gastritis [Unknown]
  - Limb discomfort [Unknown]
  - Product use issue [Unknown]

NARRATIVE: CASE EVENT DATE: 201902
